FAERS Safety Report 8408115-8 (Version None)
Quarter: 2012Q2

REPORT INFORMATION
  Report Type: 
  Country: None (occurrence: None)
  Receive Date: 20120601
  Receipt Date: 20120601
  Transmission Date: 20120825
  Serious: Yes (Other)
  Sender: FDA-Public Use
  Company Number: None

PATIENT
  Age: 72 Year
  Sex: Female
  Weight: 77.1115 kg

DRUGS (1)
  1. LEVAQUIN [Suspect]
     Indication: PNEUMONIA
     Dosage: 500 MG 1ST DAY 1 1ST DAY; 250 MG FOR 9 DAYS  1 A DAY
     Dates: start: 20101228, end: 20110106

REACTIONS (1)
  - TENDON RUPTURE [None]
